FAERS Safety Report 23392148 (Version 5)
Quarter: 2024Q2

REPORT INFORMATION
  Report Type: Spontaneous
  Country: US (occurrence: US)
  Receive Date: 20240111
  Receipt Date: 20240517
  Transmission Date: 20240715
  Serious: No
  Sender: FDA-Public Use
  Company Number: US-PFIZER INC-202400005721

PATIENT
  Age: 34 Year
  Sex: Female

DRUGS (1)
  1. EUCRISA [Suspect]
     Active Substance: CRISABOROLE
     Indication: Dermatitis atopic
     Dosage: UNK
     Route: 061
     Dates: start: 20230816, end: 20231218

REACTIONS (8)
  - Off label use [Unknown]
  - Drug ineffective for unapproved indication [Unknown]
  - Rash [Not Recovered/Not Resolved]
  - Impaired quality of life [Unknown]
  - Insomnia [Unknown]
  - Rash [Unknown]
  - Burning sensation [Unknown]
  - Rash pruritic [Unknown]
